FAERS Safety Report 7016840-9 (Version None)
Quarter: 2010Q3

REPORT INFORMATION
  Report Type: 
  Country: None (occurrence: None)
  Receive Date: 20100927
  Receipt Date: 20100914
  Transmission Date: 20110219
  Serious: Yes (Other)
  Sender: FDA-Public Use
  Company Number: JP-WATSON-2010-12433

PATIENT
  Age: 37 Year
  Sex: Female

DRUGS (1)
  1. CHLORPROMAZINE HCL [Suspect]
     Indication: SCHIZOPHRENIA
     Dosage: 75 TO 500 MG DAILY
     Route: 065

REACTIONS (1)
  - ELECTROCARDIOGRAM QT PROLONGED [None]
